APPROVED DRUG PRODUCT: STAVUDINE
Active Ingredient: STAVUDINE
Strength: 40MG
Dosage Form/Route: CAPSULE;ORAL
Application: A078775 | Product #002
Applicant: PHARMOBEDIENT CONSULTING LLC
Approved: Jan 5, 2009 | RLD: No | RS: No | Type: DISCN